FAERS Safety Report 5265498-8 (Version None)
Quarter: 2007Q1

REPORT INFORMATION
  Report Type: 
  Country: None (occurrence: None)
  Receive Date: 20070314
  Receipt Date: 20070309
  Transmission Date: 20070707
  Serious: Yes (Hospitalization)
  Sender: FDA-Public Use
  Company Number: US-BOEHRINGER INGELHEIM PHARMACEUTICALS, INC.-2007-BP-03272BP

PATIENT
  Sex: Female

DRUGS (15)
  1. SPIRIVA [Suspect]
     Indication: CHRONIC OBSTRUCTIVE PULMONARY DISEASE
     Route: 055
  2. COUMADIN [Concomitant]
  3. DUONEB [Concomitant]
  4. SYNTHROID [Concomitant]
  5. PRILOSEC [Concomitant]
  6. BUMEX [Concomitant]
  7. ALLOPURINOL [Concomitant]
  8. FLUOXETINE [Concomitant]
  9. MUCINEX [Concomitant]
  10. LOVASTATIN [Concomitant]
  11. BENZOATE [Concomitant]
  12. ALLOVERT [Concomitant]
  13. ADVAIR DISKUS 100/50 [Concomitant]
  14. RISPERDAL [Concomitant]
  15. O2 [Concomitant]

REACTIONS (1)
  - PNEUMONIA [None]
